FAERS Safety Report 4679941-6 (Version None)
Quarter: 2005Q2

REPORT INFORMATION
  Report Type: 
  Country: None (occurrence: None)
  Receive Date: 20050531
  Receipt Date: 20050523
  Transmission Date: 20051028
  Serious: Yes (Life-Threatening)
  Sender: FDA-Public Use
  Company Number: B0382188A

PATIENT
  Age: 11 Year
  Sex: Male
  Weight: 42.9103 kg

DRUGS (21)
  1. ALKERAN [Suspect]
     Indication: NEUROBLASTOMA
     Dosage: SEE IMAGE
     Route: 042
     Dates: start: 20040822, end: 20040823
  2. IFOSFAMIDE [Suspect]
     Indication: NEUROBLASTOMA
     Dosage: 3.3 GRAM (S) / PER DAY
     Dates: start: 20040817, end: 20040821
  3. MESNA [Concomitant]
  4. LENOGRASTIM [Concomitant]
  5. ONDANSETRON HYDROCHLORIDE [Concomitant]
  6. FAMOTIDINE [Concomitant]
  7. ACYCLOVIR [Concomitant]
  8. DIAZEPAM [Concomitant]
  9. DOPAMINE HCL [Concomitant]
  10. DORMICUM [Concomitant]
  11. DEXAMETHASONE [Concomitant]
  12. FUROSEMIDE [Concomitant]
  13. THIAMYLAL SODIUM [Concomitant]
  14. FLOMOXXEF [Concomitant]
  15. DEXPANTHENOL [Concomitant]
  16. MANNITOL [Concomitant]
  17. CEFEPIME [Concomitant]
  18. MINOCYCLINE HYDROCHLORIDE [Concomitant]
  19. MICAFUNGIN [Concomitant]
  20. AMIKACIN SULFATE [Concomitant]
  21. MEROPENEM [Concomitant]

REACTIONS (1)
  - CEREBRAL HAEMORRHAGE [None]
